FAERS Safety Report 17988658 (Version 3)
Quarter: 2020Q4

REPORT INFORMATION
  Report Type: Spontaneous
  Country: US (occurrence: US)
  Receive Date: 20200707
  Receipt Date: 20201207
  Transmission Date: 20210113
  Serious: No
  Sender: FDA-Public Use
  Company Number: US-PFIZER INC-2018525563

PATIENT
  Age: 11 Year
  Sex: Male
  Weight: 33.56 kg

DRUGS (3)
  1. GENOTROPIN [Suspect]
     Active Substance: SOMATROPIN
     Indication: GROWTH HORMONE DEFICIENCY
     Dosage: 1.2 MG, UNK
     Dates: start: 201812
  2. GENOTROPIN [Suspect]
     Active Substance: SOMATROPIN
     Dosage: 1.3 MG, 1X/DAY
     Dates: start: 20181229, end: 20190627
  3. GENOTROPIN [Suspect]
     Active Substance: SOMATROPIN
     Dosage: 1.3 MG, 1X/DAY
     Dates: start: 201812

REACTIONS (4)
  - Wrong technique in device usage process [Unknown]
  - Device difficult to use [Unknown]
  - Product dose omission issue [Unknown]
  - Laziness [Unknown]
